FAERS Safety Report 24712789 (Version 1)
Quarter: 2024Q4

REPORT INFORMATION
  Report Type: Spontaneous
  Country: US (occurrence: None)
  Receive Date: 20241208
  Receipt Date: 20241208
  Transmission Date: 20250115
  Serious: Yes (Disabling)
  Sender: Public
  Company Number: None

PATIENT
  Age: 45 Day
  Sex: Female
  Weight: 84.6 kg

DRUGS (1)
  1. CEPHALEXIN [Suspect]
     Active Substance: CEPHALEXIN
     Indication: Nasal discomfort
     Route: 048
     Dates: start: 20241118, end: 20241203

REACTIONS (8)
  - Wheezing [None]
  - Aggression [None]
  - Balance disorder [None]
  - Muscle spasms [None]
  - Hemiparesis [None]
  - Feeling abnormal [None]
  - Pain [None]
  - Asthenia [None]

NARRATIVE: CASE EVENT DATE: 20241129
